FAERS Safety Report 5957132-6 (Version None)
Quarter: 2008Q4

REPORT INFORMATION
  Report Type: 
  Country: None (occurrence: None)
  Receive Date: 20081118
  Receipt Date: 20081106
  Transmission Date: 20090506
  Serious: Yes (Hospitalization, Other)
  Sender: FDA-Public Use
  Company Number: JP-PFIZER INC-2008091904

PATIENT
  Age: 58 Year
  Sex: Male

DRUGS (4)
  1. VFEND [Suspect]
     Indication: FUNGAL INFECTION
     Dosage: DAILY DOSE:400MG
     Route: 042
     Dates: start: 20081018, end: 20081021
  2. VFEND [Suspect]
     Indication: FUNGAL INFECTION
     Dosage: DAILY DOSE:400MG
     Route: 048
     Dates: start: 20081022, end: 20081023
  3. DEXMEDETOMIDINE HYDROCHLORIDE [Suspect]
     Indication: SEDATION
     Dosage: DAILY DOSE:500MG
     Route: 042
     Dates: start: 20081017, end: 20081021
  4. ALL OTHER THERAPEUTIC PRODUCTS [Concomitant]

REACTIONS (2)
  - ALTERED STATE OF CONSCIOUSNESS [None]
  - RENAL IMPAIRMENT [None]
